FAERS Safety Report 4655323-8 (Version None)
Quarter: 2005Q2

REPORT INFORMATION
  Report Type: 
  Country: None (occurrence: None)
  Receive Date: 20050505
  Receipt Date: 20050418
  Transmission Date: 20051028
  Serious: Yes (Death, Life-Threatening, Hospitalization, Other)
  Sender: FDA-Public Use
  Company Number: USA050289723

PATIENT
  Age: 79 Year
  Sex: Female
  Weight: 70 kg

DRUGS (4)
  1. GEMZAR [Suspect]
     Indication: BREAST CANCER METASTATIC
     Dates: start: 20041118, end: 20041118
  2. TAXOL [Concomitant]
  3. LIPITOR [Concomitant]
  4. FOSAMAX [Concomitant]

REACTIONS (12)
  - ADVERSE EVENT [None]
  - ASTHENIA [None]
  - BLOOD POTASSIUM INCREASED [None]
  - BLOOD PRESSURE DECREASED [None]
  - CONSTIPATION [None]
  - DEHYDRATION [None]
  - DIZZINESS [None]
  - DRUG INTOLERANCE [None]
  - FOOD INTOLERANCE [None]
  - NEUTROPENIA [None]
  - RENAL FAILURE [None]
  - VENTRICULAR EXTRASYSTOLES [None]
